FAERS Safety Report 4425319-X (Version None)
Quarter: 2004Q3

REPORT INFORMATION
  Report Type: 
  Country: None (occurrence: None)
  Receive Date: 20040809
  Receipt Date: 20040730
  Transmission Date: 20050211
  Serious: Yes (Hospitalization, Other)
  Sender: FDA-Public Use
  Company Number: HQWYE876323APR03

PATIENT
  Age: 9 Year
  Sex: Male
  Weight: 28.5 kg

DRUGS (6)
  1. RAPAMUNE [Suspect]
     Indication: IMMUNOSUPPRESSANT DRUG THERAPY
     Dosage: 4 MG 1X PER 1 DAY, ORAL
     Route: 048
     Dates: start: 20020607
  2. RAPAMUNE [Suspect]
     Indication: PROPHYLAXIS AGAINST TRANSPLANT REJECTION
     Dosage: 4 MG 1X PER 1 DAY, ORAL
     Route: 048
     Dates: start: 20020607
  3. PREDNISONE TAB [Concomitant]
  4. TACROLIMUS (TACROLIMUS [Concomitant]
  5. TMP-SMX (SULFAMETHOXAZOLE/TRIMETHROPRIM) [Concomitant]
  6. ISRADIPINE (ISRADIPINE) [Concomitant]

REACTIONS (2)
  - URETERIC REIMPLANTATION [None]
  - VESICOURETERIC REFLUX [None]
